FAERS Safety Report 8380482-3 (Version None)
Quarter: 2012Q2

REPORT INFORMATION
  Report Type: 
  Country: None (occurrence: None)
  Receive Date: 20120523
  Receipt Date: 20120515
  Transmission Date: 20120825
  Serious: Yes (Hospitalization)
  Sender: FDA-Public Use
  Company Number: JP-GLAXOSMITHKLINE-B0793947A

PATIENT
  Sex: Female

DRUGS (10)
  1. LITHIUM CARBONATE [Concomitant]
     Indication: BIPOLAR DISORDER
     Dosage: 400MG PER DAY
     Route: 048
     Dates: end: 20120323
  2. LENDORMIN [Concomitant]
     Dosage: 1IUAX PER DAY
     Route: 048
  3. LAMICTAL [Suspect]
     Indication: BIPOLAR DISORDER
     Dosage: 25MG PER DAY
     Route: 048
     Dates: start: 20111107, end: 20111121
  4. LAMICTAL [Suspect]
     Dosage: 100MG PER DAY
     Route: 048
     Dates: start: 20111122
  5. LITHIUM CARBONATE [Concomitant]
     Dosage: 200MG PER DAY
     Route: 048
     Dates: start: 20120324, end: 20120326
  6. LAMICTAL [Suspect]
     Route: 048
     Dates: start: 20120301, end: 20120301
  7. LAMICTAL [Suspect]
     Dosage: 200MG PER DAY
     Route: 048
     Dates: start: 20120319, end: 20120326
  8. HIRNAMIN [Concomitant]
     Route: 048
  9. ROZEREM [Concomitant]
     Dosage: 1IUAX PER DAY
     Route: 048
  10. MEILAX [Concomitant]
     Dosage: 1IUAX PER DAY
     Route: 048

REACTIONS (21)
  - PERSONALITY DISORDER [None]
  - DRUG ERUPTION [None]
  - BLOOD LACTATE DEHYDROGENASE INCREASED [None]
  - THINKING ABNORMAL [None]
  - PYREXIA [None]
  - C-REACTIVE PROTEIN INCREASED [None]
  - BASOPHIL PERCENTAGE INCREASED [None]
  - EOSINOPHIL PERCENTAGE INCREASED [None]
  - HEPATIC FUNCTION ABNORMAL [None]
  - MOOD SWINGS [None]
  - RASH GENERALISED [None]
  - BLOOD BILIRUBIN DECREASED [None]
  - WHITE BLOOD CELL COUNT INCREASED [None]
  - NASOPHARYNGITIS [None]
  - ALANINE AMINOTRANSFERASE INCREASED [None]
  - INSOMNIA [None]
  - ASPARTATE AMINOTRANSFERASE INCREASED [None]
  - INFLAMMATION [None]
  - ILLOGICAL THINKING [None]
  - GAMMA-GLUTAMYLTRANSFERASE INCREASED [None]
  - BLOOD ALBUMIN DECREASED [None]
